FAERS Safety Report 20007968 (Version 1)
Quarter: 2021Q4

REPORT INFORMATION
  Report Type: Spontaneous
  Country: IN (occurrence: IN)
  Receive Date: 20211028
  Receipt Date: 20211028
  Transmission Date: 20220303
  Serious: Yes (Other)
  Sender: FDA-Public Use
  Company Number: IN-SA-SAC20211022000097

PATIENT
  Age: 24 Year
  Sex: Female

DRUGS (1)
  1. LEMTRADA [Suspect]
     Active Substance: ALEMTUZUMAB
     Indication: Relapsing-remitting multiple sclerosis
     Dates: start: 20211014

REACTIONS (3)
  - Thrombocytopenia [Unknown]
  - Vaginal haemorrhage [Unknown]
  - Purpura [Unknown]

NARRATIVE: CASE EVENT DATE: 20211001
